FAERS Safety Report 17140689 (Version 1)
Quarter: 2019Q4

REPORT INFORMATION
  Report Type: Spontaneous
  Country: PL (occurrence: PL)
  Receive Date: 20191211
  Receipt Date: 20191211
  Transmission Date: 20200122
  Serious: Yes (Other)
  Sender: FDA-Public Use
  Company Number: PL-TEVA-2019-PL-1151390

PATIENT
  Age: 91 Year
  Sex: Male

DRUGS (1)
  1. NYSTATYNA TEVA [Suspect]
     Active Substance: NYSTATIN
     Indication: TINEA INFECTION
     Route: 065
     Dates: start: 20191204, end: 20191204

REACTIONS (3)
  - Lip erythema [Recovering/Resolving]
  - Upper gastrointestinal haemorrhage [Recovered/Resolved]
  - Swelling [Recovering/Resolving]

NARRATIVE: CASE EVENT DATE: 20191204
